FAERS Safety Report 15249170 (Version 1)
Quarter: 2018Q3

REPORT INFORMATION
  Report Type: Spontaneous
  Country: US (occurrence: US)
  Receive Date: 20180807
  Receipt Date: 20180807
  Transmission Date: 20181010
  Serious: No
  Sender: FDA-Public Use
  Company Number: US-MYLANLABS-2018M1054735

PATIENT
  Sex: Male
  Weight: 100 kg

DRUGS (1)
  1. FENTANYL TRANSDERMAL SYSTEM [Suspect]
     Active Substance: FENTANYL
     Indication: PAIN
     Dosage: 1 DF, Q2D
     Route: 062

REACTIONS (2)
  - Hypersensitivity [Recovering/Resolving]
  - Product adhesion issue [Unknown]
